FAERS Safety Report 5484776-0 (Version None)
Quarter: 2007Q4

REPORT INFORMATION
  Report Type: 
  Country: None (occurrence: None)
  Receive Date: 20071012
  Receipt Date: 20071001
  Transmission Date: 20080405
  Serious: Yes (Other)
  Sender: FDA-Public Use
  Company Number: DE-PFIZER INC-2007081776

PATIENT
  Sex: Female

DRUGS (3)
  1. NEURONTIN [Suspect]
     Indication: POLYNEUROPATHY
     Route: 048
  2. NEURONTIN [Suspect]
     Indication: EPILEPSY
  3. VITAMIN B-12 [Concomitant]

REACTIONS (5)
  - AURICULAR SWELLING [None]
  - ENCEPHALITIS HERPES [None]
  - EPILEPSY [None]
  - HEADACHE [None]
  - NEURALGIA [None]
